FAERS Safety Report 21038590 (Version 1)
Quarter: 2022Q3

REPORT INFORMATION
  Report Type: Spontaneous
  Country: US (occurrence: None)
  Receive Date: 20220704
  Receipt Date: 20220704
  Transmission Date: 20221027
  Serious: No
  Sender: FDA-Public Use
  Company Number: US-ALM-HQ-US-2022-0346

PATIENT
  Sex: Male

DRUGS (1)
  1. KLISYRI [Suspect]
     Active Substance: TIRBANIBULIN
     Route: 061
     Dates: start: 20220216

REACTIONS (2)
  - Product use issue [Unknown]
  - Drug ineffective [Unknown]
